FAERS Safety Report 6648660-9 (Version None)
Quarter: 2010Q1

REPORT INFORMATION
  Report Type: 
  Country: None (occurrence: None)
  Receive Date: 20100324
  Receipt Date: 20100318
  Transmission Date: 20100710
  Serious: Yes (Other)
  Sender: FDA-Public Use
  Company Number: US-BAYER-200839635NA

PATIENT
  Age: 49 Year
  Sex: Female
  Weight: 67 kg

DRUGS (1)
  1. YAZ [Suspect]
     Indication: MENORRHAGIA
     Route: 048
     Dates: start: 20080911, end: 20081128

REACTIONS (1)
  - DEEP VEIN THROMBOSIS [None]
